FAERS Safety Report 25437786 (Version 1)
Quarter: 2025Q2

REPORT INFORMATION
  Report Type: Spontaneous
  Country: US (occurrence: US)
  Receive Date: 20250616
  Receipt Date: 20250616
  Transmission Date: 20250716
  Serious: No
  Sender: ENDO
  Company Number: US-ENDO USA, INC.-2024-002914

PATIENT
  Sex: Female

DRUGS (6)
  1. SUPPRELIN LA [Suspect]
     Active Substance: HISTRELIN ACETATE
     Indication: Pituitary gonadotropin hyperfunction
     Route: 058
     Dates: start: 20230606
  2. SUPPRELIN LA [Suspect]
     Active Substance: HISTRELIN ACETATE
     Indication: Pituitary gonadotropin hyperfunction
     Route: 058
     Dates: start: 20230606
  3. SUPPRELIN LA [Suspect]
     Active Substance: HISTRELIN ACETATE
     Indication: Pituitary gonadotropin hyperfunction
     Route: 058
     Dates: start: 20230606
  4. SUPPRELIN LA [Suspect]
     Active Substance: HISTRELIN ACETATE
     Route: 058
  5. SUPPRELIN LA [Suspect]
     Active Substance: HISTRELIN ACETATE
     Route: 058
  6. SUPPRELIN LA [Suspect]
     Active Substance: HISTRELIN ACETATE
     Route: 058

REACTIONS (4)
  - Implant site infection [Unknown]
  - Incorrect product administration duration [Unknown]
  - Device dislocation [Unknown]
  - Device breakage [Unknown]
